FAERS Safety Report 19408258 (Version 7)
Quarter: 2022Q2

REPORT INFORMATION
  Report Type: Report from Study
  Country: BR (occurrence: BR)
  Receive Date: 20210611
  Receipt Date: 20220628
  Transmission Date: 20220721
  Serious: Yes (Hospitalization)
  Sender: FDA-Public Use
  Company Number: BR-GLAXOSMITHKLINE-BR2021AMR124592

PATIENT

DRUGS (3)
  1. BELIMUMAB [Suspect]
     Active Substance: BELIMUMAB
     Indication: Systemic lupus erythematosus
     Dosage: 10 MG/KG, CYC
     Route: 042
  2. BELIMUMAB [Suspect]
     Active Substance: BELIMUMAB
     Dosage: 989
  3. BELIMUMAB [Suspect]
     Active Substance: BELIMUMAB
     Dosage: 953
     Dates: start: 202108

REACTIONS (4)
  - COVID-19 [Recovered/Resolved]
  - Disease complication [Recovered/Resolved]
  - Product dose omission issue [Unknown]
  - Product dose omission issue [Unknown]

NARRATIVE: CASE EVENT DATE: 20210528
